FAERS Safety Report 6242719-6 (Version None)
Quarter: 2009Q2

REPORT INFORMATION
  Report Type: 
  Country: None (occurrence: None)
  Receive Date: 20090617
  Receipt Date: 20090617
  Transmission Date: 20091009
  Serious: Yes (Other)
  Sender: FDA-Public Use
  Company Number: None

PATIENT
  Sex: Female
  Weight: 59.8748 kg

DRUGS (5)
  1. ZICAM MATRIXX INIATIVES [Suspect]
     Indication: NASAL CONGESTION
     Dosage: 2 SPRAYS INTO EACH NOSTRIL NASAL
     Route: 045
     Dates: start: 20050101, end: 20051231
  2. ALLERGY PILLS [Concomitant]
  3. DECONGESTANTS [Concomitant]
  4. STEROIDS [Concomitant]
  5. ANTIBIOTICS [Concomitant]

REACTIONS (2)
  - ANOSMIA [None]
  - IMPAIRED WORK ABILITY [None]
